FAERS Safety Report 25278275 (Version 1)
Quarter: 2025Q2

REPORT INFORMATION
  Report Type: Spontaneous
  Country: US (occurrence: None)
  Receive Date: 20250506
  Receipt Date: 20250506
  Transmission Date: 20250716
  Serious: Yes (unspecified)
  Sender: FDA-CTU
  Company Number: None

PATIENT
  Age: 70 Year
  Sex: Male
  Weight: 99 kg

DRUGS (10)
  1. CIPROFLOXACIN [Suspect]
     Active Substance: CIPROFLOXACIN
     Indication: Infection prophylaxis
     Dosage: OTHER QUANTITY : 1 TABLET(S);?FREQUENCY : DAILY;?
     Route: 048
     Dates: start: 20250225, end: 20250302
  2. DILTIAZEM [Concomitant]
     Active Substance: DILTIAZEM
  3. ELIQUIS [Concomitant]
     Active Substance: APIXABAN
  4. ALFUZOSIN [Concomitant]
     Active Substance: ALFUZOSIN
  5. MINERALS\VITAMINS [Concomitant]
     Active Substance: MINERALS\VITAMINS
  6. VITAMIN D NOS [Concomitant]
     Active Substance: CHOLECALCIFEROL\ERGOCALCIFEROL
  7. TYLENOL [Concomitant]
     Active Substance: ACETAMINOPHEN
  8. NAPROXEN [Concomitant]
     Active Substance: NAPROXEN
  9. OMEPRAZOLE [Concomitant]
     Active Substance: OMEPRAZOLE
  10. UNSPECIFIED INGREDIENT [Concomitant]
     Active Substance: UNSPECIFIED INGREDIENT

REACTIONS (1)
  - Tendon rupture [None]

NARRATIVE: CASE EVENT DATE: 20250318
